FAERS Safety Report 10385467 (Version 1)
Quarter: 2014Q1

REPORT INFORMATION
  Report Type: Spontaneous
  Country: US (occurrence: None)
  Receive Date: 20140306
  Receipt Date: 20140306
  Transmission Date: 20141002
  Serious: Yes (Hospitalization)
  Sender: FDA-Public Use
  Company Number: 163-21880-13042642

PATIENT
  Age: 57 Year
  Sex: Male

DRUGS (9)
  1. REVLIMID (LENALIDOMIDE) (10 MILLIGRAM, CAPSULES) [Suspect]
     Indication: PLASMA CELL MYELOMA
     Dosage: NOV-2008 - DISCONTINUED
     Route: 048
     Dates: start: 200811
  2. ACYCLOVIR (ACICLOVIR) (ACICLOVIR) [Concomitant]
  3. ALLOPURINOL [Concomitant]
  4. ASPIR 81 (ACETYLSALICYLIC ACID) [Concomitant]
  5. BACTRIM [Concomitant]
  6. CACIUM WITH VITAMIN D (CALCIUM WITH VITAMIN D) [Concomitant]
  7. DEXAMETHASONE [Concomitant]
  8. OMEPRAZOLE [Concomitant]
  9. VELCADE (BORTEZOMIB) [Concomitant]

REACTIONS (1)
  - Sepsis [None]
